FAERS Safety Report 25520101 (Version 2)
Quarter: 2025Q3

REPORT INFORMATION
  Report Type: Spontaneous
  Country: US (occurrence: US)
  Receive Date: 20250704
  Receipt Date: 20250807
  Transmission Date: 20251021
  Serious: No
  Sender: SANOFI AVENTIS
  Company Number: US-SA-2025SA188173

PATIENT
  Age: 12 Year
  Sex: Female
  Weight: 52.16 kg

DRUGS (3)
  1. DUPIXENT [Suspect]
     Active Substance: DUPILUMAB
     Indication: Dermatitis atopic
     Dosage: 200 MG, QOW
     Route: 058
  2. IBUPROFEN [Concomitant]
     Active Substance: IBUPROFEN
  3. MIDOL (IBUPROFEN) [Concomitant]
     Active Substance: IBUPROFEN

REACTIONS (11)
  - Eczema [Unknown]
  - Rash [Unknown]
  - Perfume sensitivity [Unknown]
  - Migraine [Unknown]
  - Headache [Unknown]
  - Product dose omission issue [Unknown]
  - Nausea [Unknown]
  - Anxiety [Unknown]
  - Fatigue [Unknown]
  - Dizziness [Unknown]
  - Incorrect dose administered [Unknown]

NARRATIVE: CASE EVENT DATE: 20250101
